FAERS Safety Report 23336154 (Version 1)
Quarter: 2023Q4

REPORT INFORMATION
  Report Type: Spontaneous
  Country: US (occurrence: US)
  Receive Date: 20231225
  Receipt Date: 20231225
  Transmission Date: 20240110
  Serious: Yes (Other)
  Sender: FDA-Public Use
  Company Number: US-STRIDES ARCOLAB LIMITED-2023SP018719

PATIENT
  Sex: Male

DRUGS (6)
  1. LAMIVUDINE [Suspect]
     Active Substance: LAMIVUDINE
     Indication: Product used for unknown indication
     Dosage: PATIENT MOTHER RECEIVED LAMIVUDINE DRUG PREGNANCY, UNK (ONE COURSE)
     Route: 064
     Dates: start: 2023
  2. LAMIVUDINE [Suspect]
     Active Substance: LAMIVUDINE
     Dosage: PATIENT MOTHER RECEIVED LAMIVUDINE DRUG PREGNANCY, UNK (TAB/CAP (ONE COURSE, TOTAL DAILY DOSE:1)
     Route: 064
     Dates: start: 20231101
  3. TENOFOVIR DISOPROXIL FUMARATE [Suspect]
     Active Substance: TENOFOVIR DISOPROXIL FUMARATE
     Indication: Product used for unknown indication
     Dosage: PATIENT MOTHER RECEIVED TENOFOVIR DISOPROXIL FUMARATE DURING PREGNANCY, UNK (ONE COURSE)
     Route: 064
     Dates: start: 2023
  4. TENOFOVIR DISOPROXIL FUMARATE [Suspect]
     Active Substance: TENOFOVIR DISOPROXIL FUMARATE
     Dosage: PATIENT MOTHER RECEIVED TENOFOVIR DISOPROXIL FUMARATE DURING PREGNANCY, UNK, (TAB/CAP (ONE COURSE, T
     Route: 064
     Dates: start: 20231101
  5. DOLUTEGRAVIR [Suspect]
     Active Substance: DOLUTEGRAVIR
     Indication: Product used for unknown indication
     Dosage: PATIENT MOTHER RECEIVED DOLUTEGRAVIR DURING PREGNANCY, UNK (ONE COURSE)
     Route: 064
     Dates: start: 2023
  6. DOLUTEGRAVIR [Suspect]
     Active Substance: DOLUTEGRAVIR
     Dosage: PATIENT MOTHER RECEIVED DOLUTEGRAVIR DURING PREGNANCY,UNK (TAB/CAP (ONE COURSE, TOTAL DAILY DOSE:1)
     Route: 064
     Dates: start: 20231101

REACTIONS (2)
  - Premature baby [Unknown]
  - Foetal exposure during pregnancy [Unknown]
